FAERS Safety Report 4767048-9 (Version None)
Quarter: 2005Q3

REPORT INFORMATION
  Report Type: 
  Country: None (occurrence: None)
  Receive Date: 20050909
  Receipt Date: 20050510
  Transmission Date: 20060218
  Serious: Yes (Life-Threatening)
  Sender: FDA-Public Use
  Company Number: 011

PATIENT
  Sex: Male
  Weight: 64.4108 kg

DRUGS (10)
  1. FAZACLO ODT [Suspect]
     Indication: SCHIZOPHRENIA
     Dosage: 225MG BID, 400MG HS PO
     Route: 048
     Dates: start: 20050422, end: 20050502
  2. CELEXA [Concomitant]
  3. INH [Concomitant]
  4. COGENTIN [Concomitant]
  5. COLACE [Concomitant]
  6. FISH OIL [Concomitant]
  7. METAMUCIL [Concomitant]
  8. MULTI-VITAMIN [Concomitant]
  9. ASCORBIC ACID [Concomitant]
  10. VITAMIN E [Concomitant]

REACTIONS (1)
  - CONVULSION [None]
